FAERS Safety Report 9131394 (Version 1)
Quarter: 2013Q1

REPORT INFORMATION
  Report Type: Spontaneous
  Country: US (occurrence: US)
  Receive Date: 20130301
  Receipt Date: 20130301
  Transmission Date: 20140127
  Serious: No
  Sender: FDA-Public Use
  Company Number: US-PFIZER INC-2013071233

PATIENT
  Sex: Female
  Weight: 53.52 kg

DRUGS (7)
  1. EFFEXOR XR [Suspect]
     Indication: MAJOR DEPRESSION
     Dosage: 37.5 MG, 1X/DAY
  2. EFFEXOR XR [Suspect]
     Dosage: 300 MG, 1X/DAY
  3. EFFEXOR XR [Suspect]
     Dosage: 75 MG, 1X/DAY
  4. EFFEXOR XR [Suspect]
     Dosage: 150 MG, 1X/DAY
     Dates: end: 2012
  5. EFFEXOR XR [Suspect]
     Dosage: 75 MG, 2X/DAY
     Dates: start: 2012, end: 2012
  6. VENLAFAXINE HYDROCHLORIDE [Suspect]
     Indication: MAJOR DEPRESSION
     Dosage: 150 MG, 1X/DAY
     Dates: start: 2012, end: 2012
  7. VENLAFAXINE HYDROCHLORIDE [Suspect]
     Dosage: 75 MG, 2X/DAY
     Dates: start: 2012, end: 2012

REACTIONS (4)
  - Blood cholesterol increased [Recovered/Resolved]
  - Abdominal discomfort [Unknown]
  - Malaise [Unknown]
  - Drug ineffective [Unknown]
